FAERS Safety Report 5974908-X (Version None)
Quarter: 2008Q4

REPORT INFORMATION
  Report Type: 
  Country: None (occurrence: None)
  Receive Date: 20081202
  Receipt Date: 20081124
  Transmission Date: 20090506
  Serious: Yes (Hospitalization)
  Sender: FDA-Public Use
  Company Number: BE-PFIZER INC-2008100056

PATIENT
  Sex: Male
  Weight: 79 kg

DRUGS (12)
  1. SU-011,248 [Suspect]
     Indication: COLORECTAL CANCER METASTATIC
     Route: 048
     Dates: start: 20081028, end: 20081124
  2. IRINOTECAN HCL [Suspect]
     Indication: COLORECTAL CANCER METASTATIC
     Dosage: FREQ:EVERY 14 DAYS
     Route: 042
     Dates: start: 20081110, end: 20081110
  3. FLUOROURACIL [Suspect]
     Indication: COLORECTAL CANCER METASTATIC
     Dosage: FREQ:EVERY 14 DAYS
     Route: 042
     Dates: start: 20081110, end: 20081110
  4. LEUCOVORIN CALCIUM [Suspect]
     Dosage: FREQ:EVERY 14 DAYS
     Route: 042
     Dates: start: 20081110, end: 20081110
  5. METFORMIN HCL [Concomitant]
     Route: 048
     Dates: start: 20070101
  6. ATENOLOL/HYDROCHLOROTHIAZIDE [Concomitant]
     Route: 048
     Dates: start: 20040101
  7. BROMAZEPAM [Concomitant]
     Route: 048
     Dates: start: 19920701
  8. CLONAZEPAM [Concomitant]
     Route: 048
     Dates: start: 19940702
  9. ATENOLOL [Concomitant]
     Route: 048
     Dates: start: 20040101
  10. LACTULOSE [Concomitant]
     Route: 048
     Dates: start: 20071127
  11. MORPHINE SULFATE [Concomitant]
     Route: 048
     Dates: start: 20080311
  12. OMEPRAZOLE [Concomitant]
     Route: 048
     Dates: start: 20081101

REACTIONS (1)
  - VENTRICULAR TACHYCARDIA [None]
